FAERS Safety Report 9828518 (Version 2)
Quarter: 2014Q2

REPORT INFORMATION
  Report Type: Report from Study
  Country: US (occurrence: US)
  Receive Date: 20140117
  Receipt Date: 20140414
  Transmission Date: 20141212
  Serious: Yes (Death)
  Sender: FDA-Public Use
  Company Number: US-BRISTOL-MYERS SQUIBB COMPANY-19987213

PATIENT
  Age: 32 Year
  Sex: Female

DRUGS (5)
  1. BARACLUDE [Suspect]
     Indication: ANTIRETROVIRAL THERAPY
     Route: 048
     Dates: start: 20130528, end: 20131027
  2. TRUVADA [Suspect]
     Indication: ANTIRETROVIRAL THERAPY
     Dosage: 27-OCT-2013
     Route: 048
     Dates: start: 20120911
  3. PREZISTA [Suspect]
     Indication: ANTIRETROVIRAL THERAPY
     Dosage: 1200MG/D, 2400?COURSE 2-28MAY-27OCT13
     Route: 048
     Dates: start: 20120911, end: 20131027
  4. RITONAVIR [Suspect]
     Indication: ANTIRETROVIRAL THERAPY
     Dosage: 200MG/D, 400 MG?COURSE 2?28MAY-27OCT13
     Route: 048
     Dates: start: 20120911, end: 20131027
  5. LAMIVUDINE [Suspect]
     Indication: ANTIRETROVIRAL THERAPY
     Dates: start: 20131022, end: 20131027

REACTIONS (2)
  - Postpartum haemorrhage [Fatal]
  - Pregnancy [Recovered/Resolved]
